FAERS Safety Report 8496497-0 (Version None)
Quarter: 2012Q3

REPORT INFORMATION
  Report Type: 
  Country: None (occurrence: None)
  Receive Date: 20120709
  Receipt Date: 20120629
  Transmission Date: 20120928
  Serious: Yes (Death)
  Sender: FDA-Public Use
  Company Number: US-CELGENEUS-163-21660-12060487

PATIENT
  Sex: Male

DRUGS (9)
  1. PHENERGAN HCL [Concomitant]
     Indication: NAUSEA
     Route: 048
  2. KLOR-CON [Concomitant]
     Dosage: 10 MILLIEQUIVALENTS
     Route: 048
  3. WARFARIN SODIUM [Concomitant]
     Indication: PAIN
     Dosage: 7.5 MILLIGRAM
     Route: 048
  4. PROPRANOLOL [Concomitant]
     Dosage: 120 MILLIGRAM
     Route: 048
  5. ABRAXANE [Suspect]
     Route: 041
     Dates: start: 20120425, end: 20120425
  6. CREON [Concomitant]
     Dosage: 6000 MILLIGRAM
     Route: 048
  7. PREDNISOLONE [Concomitant]
     Indication: PAIN
     Dosage: 1 PERCENT
     Route: 047
  8. PHENERGAN HCL [Concomitant]
     Indication: VOMITING
  9. OXYCODONE HCL [Concomitant]
     Indication: PAIN
     Route: 048

REACTIONS (1)
  - PANCREATIC CARCINOMA [None]
